FAERS Safety Report 4437247-4 (Version None)
Quarter: 2004Q3

REPORT INFORMATION
  Report Type: 
  Country: None (occurrence: None)
  Receive Date: 20040727
  Receipt Date: 20040511
  Transmission Date: 20050211
  Serious: Yes (Other)
  Sender: FDA-Public Use
  Company Number: 0410006

PATIENT
  Age: 1 Year
  Sex: Female
  Weight: 7.7 kg

DRUGS (1)
  1. ORFADIN [Suspect]
     Indication: AMINO ACID METABOLISM DISORDER
     Dosage: 7 MILLIGRAM TWICE DAILY ORAL
     Route: 048
     Dates: start: 20040401, end: 20040406

REACTIONS (1)
  - LIVER TRANSPLANT [None]
